FAERS Safety Report 13300799 (Version 6)
Quarter: 2022Q2

REPORT INFORMATION
  Report Type: Report from Study
  Country: IL (occurrence: IL)
  Receive Date: 20170307
  Receipt Date: 20220613
  Transmission Date: 20220720
  Serious: Yes (Hospitalization, Other)
  Sender: FDA-Public Use
  Company Number: IL-SHIRE-IL201704187

PATIENT
  Age: 38 Year
  Sex: Female
  Weight: 70 kg

DRUGS (5)
  1. VELAGLUCERASE ALFA [Suspect]
     Active Substance: VELAGLUCERASE ALFA
     Indication: Gaucher^s disease
     Dosage: 30 INTERNATIONAL UNIT/KILOGRAM, Q2WEEKS
     Route: 042
     Dates: start: 20071021, end: 202007
  2. BEZAFIBRATE [Concomitant]
     Active Substance: BEZAFIBRATE
     Indication: Hyperlipidaemia
     Dosage: 400 MILLIGRAM, QD
     Route: 048
     Dates: start: 2016
  3. CEFUROXIME [Concomitant]
     Active Substance: CEFUROXIME
     Indication: Pelvic inflammatory disease
     Dosage: 500 MILLIGRAM, BID
     Route: 048
     Dates: start: 20161003, end: 20161010
  4. FLAGYL [Concomitant]
     Active Substance: METRONIDAZOLE\METRONIDAZOLE HYDROCHLORIDE
     Indication: Pelvic inflammatory disease
     Dosage: 500 MILLIGRAM, TID
     Route: 048
     Dates: start: 20161003, end: 20161010
  5. PAPAVERINE [Concomitant]
     Active Substance: PAPAVERINE
     Indication: Pelvic inflammatory disease
     Dosage: 80 MILLIGRAM, TID
     Route: 048
     Dates: start: 20161003, end: 20161010

REACTIONS (2)
  - Appendicitis [Recovered/Resolved]
  - Post procedural infection [Recovered/Resolved]

NARRATIVE: CASE EVENT DATE: 20170226
